FAERS Safety Report 20308908 (Version 1)
Quarter: 2022Q1

REPORT INFORMATION
  Report Type: Spontaneous
  Country: US (occurrence: None)
  Receive Date: 20220106
  Receipt Date: 20220106
  Transmission Date: 20220423
  Serious: Yes (Death, Hospitalization)
  Sender: FDA-Public Use
  Company Number: None

PATIENT
  Age: 76 Year
  Sex: Female
  Weight: 57.6 kg

DRUGS (7)
  1. XPOVIO [Suspect]
     Active Substance: SELINEXOR
     Indication: Plasma cell myeloma
     Dates: start: 20210610, end: 20210624
  2. DEXAMETHASONE [Concomitant]
     Active Substance: DEXAMETHASONE
  3. ZOFRAN [Concomitant]
     Active Substance: ONDANSETRON HYDROCHLORIDE
  4. EMEND [Concomitant]
     Active Substance: APREPITANT
  5. ZYPREXA [Concomitant]
     Active Substance: OLANZAPINE
  6. CALCIUM [Concomitant]
     Active Substance: CALCIUM
  7. VITAMIN B12 [Concomitant]
     Active Substance: CYANOCOBALAMIN

REACTIONS (12)
  - Fatigue [None]
  - Wheezing [None]
  - Dyspnoea [None]
  - Dyspnoea [None]
  - Toxicity to various agents [None]
  - Decreased appetite [None]
  - Gait inability [None]
  - Blood sodium decreased [None]
  - Dementia [None]
  - Respiratory distress [None]
  - Encephalopathy [None]
  - Osmotic demyelination syndrome [None]

NARRATIVE: CASE EVENT DATE: 20210626
